FAERS Safety Report 5422447-7 (Version None)
Quarter: 2007Q3

REPORT INFORMATION
  Report Type: 
  Country: None (occurrence: None)
  Receive Date: 20070822
  Receipt Date: 20070809
  Transmission Date: 20080115
  Serious: Yes (Hospitalization)
  Sender: FDA-Public Use
  Company Number: JP-ASTRAZENECA-2007SE03874

PATIENT
  Age: 25623 Day
  Sex: Male

DRUGS (6)
  1. CANDESARTAN CILEXETIL [Suspect]
     Indication: HYPERTENSION
     Route: 048
     Dates: start: 20070320, end: 20070423
  2. CIBENOL [Suspect]
     Indication: ANGINA PECTORIS
     Route: 048
     Dates: start: 20070206, end: 20070423
  3. HALFDIGOXIN [Concomitant]
     Indication: ANGINA PECTORIS
     Route: 048
     Dates: start: 20070206
  4. AMARYL [Concomitant]
     Indication: DIABETES MELLITUS
     Route: 048
  5. AMARYL [Concomitant]
     Route: 048
     Dates: end: 20070206
  6. AMARYL [Concomitant]
     Dosage: ONGOING, 4 MG/DAY (3 AND 1 MG)
     Route: 048
     Dates: start: 20070207

REACTIONS (5)
  - ALANINE AMINOTRANSFERASE INCREASED [None]
  - ASPARTATE AMINOTRANSFERASE INCREASED [None]
  - BLOOD ALKALINE PHOSPHATASE INCREASED [None]
  - GAMMA-GLUTAMYLTRANSFERASE INCREASED [None]
  - LIVER DISORDER [None]
